FAERS Safety Report 15697532 (Version 1)
Quarter: 2018Q4

REPORT INFORMATION
  Report Type: Report from Study
  Country: None (occurrence: BR)
  Receive Date: 20181207
  Receipt Date: 20181207
  Transmission Date: 20190205
  Serious: Yes (Other)
  Sender: FDA-Public Use
  Company Number: BR-ABBVIE-18K-020-2576210-00

PATIENT
  Sex: Female

DRUGS (2)
  1. HUMIRA [Suspect]
     Active Substance: ADALIMUMAB
     Indication: PSORIATIC ARTHROPATHY
     Route: 058
     Dates: start: 20180629, end: 20181123
  2. METHOTREXATE. [Concomitant]
     Active Substance: METHOTREXATE
     Indication: PRODUCT USED FOR UNKNOWN INDICATION

REACTIONS (9)
  - Pertussis [Unknown]
  - Cough [Unknown]
  - Burning sensation [Unknown]
  - Hypersensitivity [Unknown]
  - Dyspnoea [Unknown]
  - Liver disorder [Unknown]
  - Hepatic steatosis [Unknown]
  - Pruritus [Unknown]
  - Adverse event [Unknown]

NARRATIVE: CASE EVENT DATE: 2018
